FAERS Safety Report 7103909-3 (Version None)
Quarter: 2010Q4

REPORT INFORMATION
  Report Type: 
  Country: None (occurrence: None)
  Receive Date: 20101115
  Receipt Date: 20101109
  Transmission Date: 20110411
  Serious: Yes (Other)
  Sender: FDA-Public Use
  Company Number: US-PFIZER INC-2010144070

PATIENT
  Sex: Female
  Weight: 79.365 kg

DRUGS (8)
  1. LYRICA [Suspect]
     Indication: FIBROMYALGIA
     Dosage: 150 MG, 3X/DAY
     Route: 048
  2. LYRICA [Suspect]
     Indication: SCIATIC NERVE NEUROPATHY
  3. FENTANYL [Concomitant]
     Indication: PAIN
     Dosage: UNK
  4. FENTANYL [Concomitant]
     Indication: INTERVERTEBRAL DISC DEGENERATION
  5. FENTANYL [Concomitant]
     Indication: RHEUMATOID ARTHRITIS
  6. VALIUM [Concomitant]
     Indication: PAIN
     Dosage: UNK
  7. VALIUM [Concomitant]
     Indication: INTERVERTEBRAL DISC DEGENERATION
  8. VALIUM [Concomitant]
     Indication: RHEUMATOID ARTHRITIS

REACTIONS (7)
  - CONVULSION [None]
  - MUSCULOSKELETAL STIFFNESS [None]
  - OEDEMA PERIPHERAL [None]
  - PAIN IN EXTREMITY [None]
  - RENAL IMPAIRMENT [None]
  - SCIATIC NERVE INJURY [None]
  - SCIATIC NERVE NEUROPATHY [None]
